FAERS Safety Report 6981823-1 (Version None)
Quarter: 2010Q3

REPORT INFORMATION
  Report Type: 
  Country: None (occurrence: None)
  Receive Date: 20100914
  Receipt Date: 20091118
  Transmission Date: 20110219
  Serious: No
  Sender: FDA-Public Use
  Company Number: US-PFIZER INC-2009266092

PATIENT
  Sex: Male
  Weight: 50.3 kg

DRUGS (5)
  1. LYRICA [Suspect]
     Indication: NERVE INJURY
     Dosage: 75 MG, 1X/DAY
     Route: 048
     Dates: start: 20090901
  2. LYRICA [Suspect]
     Indication: BURNING SENSATION
  3. TAGAMET [Concomitant]
     Dosage: UNK
  4. CELEXA [Concomitant]
     Dosage: 20 MG, UNK
  5. VALIUM [Concomitant]
     Dosage: 10 MG, UNK

REACTIONS (1)
  - DRUG INEFFECTIVE [None]
